FAERS Safety Report 9350996 (Version 2)
Quarter: 2013Q3

REPORT INFORMATION
  Report Type: Spontaneous
  Country: IT (occurrence: IT)
  Receive Date: 20130617
  Receipt Date: 20130729
  Transmission Date: 20140515
  Serious: Yes (Hospitalization)
  Sender: FDA-Public Use
  Company Number: IT-BRISTOL-MYERS SQUIBB COMPANY-19012871

PATIENT
  Age: 77 Year
  Sex: Female

DRUGS (5)
  1. COUMADIN TABS 5 MG [Suspect]
     Indication: ATRIAL FIBRILLATION
     Dosage: INTERRUTPED ON 23APR13 AND RESTARTED ON 13-JUN-2013
     Route: 048
     Dates: start: 20130107
  2. ATORVASTATIN [Concomitant]
  3. BISOPROLOL HEMIFUMARATE [Concomitant]
  4. RAMIPRIL [Concomitant]
  5. SEROQUEL [Concomitant]
     Dosage: TABS

REACTIONS (2)
  - Subdural haematoma [Recovered/Resolved]
  - Head injury [Unknown]
